FAERS Safety Report 12394878 (Version 2)
Quarter: 2016Q3

REPORT INFORMATION
  Report Type: Report from Study
  Country: US (occurrence: US)
  Receive Date: 20160523
  Receipt Date: 20160803
  Transmission Date: 20161109
  Serious: Yes (Hospitalization, Other)
  Sender: FDA-Public Use
  Company Number: PHEH2016US012557

PATIENT
  Sex: Male

DRUGS (1)
  1. TOBI PODHALER [Suspect]
     Active Substance: TOBRAMYCIN
     Indication: CYSTIC FIBROSIS
     Dosage: 28 MG, BID
     Route: 055
     Dates: start: 20160301

REACTIONS (6)
  - Bronchial obstruction [Unknown]
  - Cough [Unknown]
  - Condition aggravated [Unknown]
  - Wheezing [Unknown]
  - Drug intolerance [Unknown]
  - Cystic fibrosis [Unknown]
